FAERS Safety Report 9785591 (Version 1)
Quarter: 2013Q4

REPORT INFORMATION
  Report Type: Spontaneous
  Country: US (occurrence: US)
  Receive Date: 20131227
  Receipt Date: 20131227
  Transmission Date: 20140711
  Serious: Yes (Other)
  Sender: FDA-Public Use
  Company Number: US-BAYER-2013-155762

PATIENT
  Age: 77 Year
  Sex: Female
  Weight: 61.22 kg

DRUGS (2)
  1. ALKA-SELTZER PLUS SEVERE SINUS CONGESTION ALLERGY + COUGH LIQUID G [Suspect]
     Indication: SINUS CONGESTION
     Dosage: 2 DF, ONCE
     Route: 048
     Dates: start: 20131217, end: 20131217
  2. ADVAIR [Concomitant]

REACTIONS (1)
  - Choking [Recovered/Resolved]
